FAERS Safety Report 8447909-X (Version None)
Quarter: 2012Q2

REPORT INFORMATION
  Report Type: 
  Country: None (occurrence: None)
  Receive Date: 20120619
  Receipt Date: 20120607
  Transmission Date: 20120825
  Serious: Yes (Life-Threatening, Hospitalization)
  Sender: FDA-Public Use
  Company Number: HK-BAYER-201040493GPV

PATIENT
  Age: 46 Year
  Sex: Male
  Weight: 55 kg

DRUGS (6)
  1. PLACEBO [Suspect]
     Indication: HEPATIC NEOPLASM MALIGNANT
     Dosage: 150 MG
     Route: 048
     Dates: start: 20100729, end: 20100907
  2. ADEFOVIR DIPIVOXIL [Concomitant]
     Indication: HEPATITIS B
     Dosage: 10 MG (DAILY DOSE), , ORAL
     Route: 048
     Dates: start: 20100312, end: 20100914
  3. BARACLUDE [Concomitant]
     Indication: HEPATITIS B
     Dosage: 0.5 MG (DAILY DOSE), , ORAL
     Route: 048
     Dates: start: 20100915
  4. SORAFENIB [Suspect]
     Indication: HEPATIC NEOPLASM MALIGNANT
     Dosage: 800 MG
     Route: 048
     Dates: start: 20100729, end: 20100907
  5. VIOFORM [Concomitant]
     Indication: RASH
     Dosage: 10 MG (DAILY DOSE), , TOPICAL
     Route: 061
     Dates: start: 20100811, end: 20100831
  6. LAMIVUDINE [Concomitant]
     Indication: HEPATITIS B
     Dosage: 100 MG (DAILY DOSE), , ORAL
     Route: 048
     Dates: start: 20100312, end: 20100914

REACTIONS (2)
  - OEDEMA PERIPHERAL [None]
  - HEPATIC FUNCTION ABNORMAL [None]
